FAERS Safety Report 8296625-6 (Version None)
Quarter: 2012Q2

REPORT INFORMATION
  Report Type: 
  Country: None (occurrence: None)
  Receive Date: 20120418
  Receipt Date: 20120418
  Transmission Date: 20120825
  Serious: Yes (Life-Threatening, Other)
  Sender: FDA-Public Use
  Company Number: None

PATIENT
  Age: 63 Year
  Sex: Female
  Weight: 70.306 kg

DRUGS (1)
  1. SAVELLA [Suspect]
     Indication: FIBROMYALGIA
     Dates: start: 20100528, end: 20100815

REACTIONS (9)
  - ANHEDONIA [None]
  - FATIGUE [None]
  - ABDOMINAL PAIN UPPER [None]
  - PRURITUS GENERALISED [None]
  - CRYING [None]
  - SUICIDAL IDEATION [None]
  - EATING DISORDER [None]
  - HYPERHIDROSIS [None]
  - PYREXIA [None]
